FAERS Safety Report 4979422-6 (Version None)
Quarter: 2006Q2

REPORT INFORMATION
  Report Type: 
  Country: None (occurrence: None)
  Receive Date: 20060421
  Receipt Date: 20050922
  Transmission Date: 20061013
  Serious: Yes (Hospitalization)
  Sender: FDA-Public Use
  Company Number: US-MERCK-0509USA03623

PATIENT
  Age: 54 Year
  Sex: Male
  Weight: 108 kg

DRUGS (15)
  1. VIOXX [Suspect]
     Indication: BACK PAIN
     Route: 048
     Dates: start: 19991101, end: 20040903
  2. VIOXX [Suspect]
     Indication: ARTHRITIS
     Route: 048
     Dates: start: 19991101, end: 20040903
  3. VIAGRA [Concomitant]
     Route: 065
  4. NASACORT AQ [Concomitant]
     Route: 065
  5. PREVACID [Concomitant]
     Route: 065
  6. ALLEGRA [Concomitant]
     Route: 065
  7. ALLEGRA [Concomitant]
     Route: 065
  8. AMITRIPTYLINE HYDROCHLORIDE [Concomitant]
     Route: 065
  9. TRIAMCINOLONE [Concomitant]
     Route: 065
  10. METOCLOPRAMIDE [Concomitant]
     Route: 065
  11. [THERAPY UNSPECIFIED] [Concomitant]
     Route: 065
  12. POLYETHYLENE GLYCOL 3350 [Concomitant]
     Route: 065
  13. EFFEXOR XR [Concomitant]
     Route: 065
  14. LIPITOR [Concomitant]
     Route: 065
  15. ZETIA [Concomitant]
     Route: 048

REACTIONS (18)
  - ANGINA PECTORIS [None]
  - ARTERIOSCLEROSIS [None]
  - CERVICAL NEURITIS [None]
  - CHEST PAIN [None]
  - CORONARY ARTERY DISEASE [None]
  - DEPRESSION [None]
  - DIZZINESS POSTURAL [None]
  - DUPUYTREN'S CONTRACTURE [None]
  - EPICONDYLITIS [None]
  - ERECTILE DYSFUNCTION [None]
  - HYPERLIPIDAEMIA [None]
  - JOINT DISLOCATION [None]
  - MYOCARDIAL INFARCTION [None]
  - NEURITIS [None]
  - OSTEOARTHRITIS [None]
  - RHINITIS ALLERGIC [None]
  - SPINAL COLUMN STENOSIS [None]
  - TOOTH ABSCESS [None]
